FAERS Safety Report 13139763 (Version 1)
Quarter: 2017Q1

REPORT INFORMATION
  Report Type: Spontaneous
  Country: US (occurrence: US)
  Receive Date: 20170123
  Receipt Date: 20170123
  Transmission Date: 20170428
  Serious: Yes (Other)
  Sender: FDA-Public Use
  Company Number: US-PFIZER INC-2017027065

PATIENT
  Age: 14 Year
  Sex: Male

DRUGS (1)
  1. NORPACE [Suspect]
     Active Substance: DISOPYRAMIDE PHOSPHATE
     Indication: HYPERTROPHIC CARDIOMYOPATHY
     Dosage: 400 MG, 1X/DAY (2 100MG PILLS IN THE MORNING/ 2 100MG PILLS AT NIGHT)

REACTIONS (1)
  - Neoplasm malignant [Unknown]
